FAERS Safety Report 8083218-9 (Version None)
Quarter: 2012Q1

REPORT INFORMATION
  Report Type: 
  Country: None (occurrence: None)
  Receive Date: 20120127
  Receipt Date: 20110303
  Transmission Date: 20120608
  Serious: No
  Sender: FDA-Public Use
  Company Number: US-ABBOTT-11P-163-0708961-00

PATIENT
  Age: 70 Year
  Sex: Female

DRUGS (5)
  1. HUMIRA [Suspect]
     Indication: PSORIATIC ARTHROPATHY
     Dates: start: 20100901
  2. PROZAC [Concomitant]
     Indication: DEPRESSION
  3. PANPOPROZOLE [Concomitant]
     Indication: GASTROOESOPHAGEAL REFLUX DISEASE
  4. OXYBUTYNIN [Concomitant]
     Indication: URINARY INCONTINENCE
  5. ACETAMINOPHEN [Concomitant]
     Indication: PAIN
     Dosage: PRN

REACTIONS (6)
  - INJECTION SITE HAEMORRHAGE [None]
  - DRUG DOSE OMISSION [None]
  - WRONG TECHNIQUE IN DRUG USAGE PROCESS [None]
  - INJECTION SITE HAEMATOMA [None]
  - WOUND INFECTION [None]
  - ANIMAL BITE [None]
